FAERS Safety Report 5849726-3 (Version None)
Quarter: 2008Q3

REPORT INFORMATION
  Report Type: 
  Country: None (occurrence: None)
  Receive Date: 20080819
  Receipt Date: 20080702
  Transmission Date: 20090109
  Serious: Yes (Death, Disabling)
  Sender: FDA-Public Use
  Company Number: US-PURDUE-USA_2008_0034166

PATIENT
  Age: 44 Year
  Sex: Male

DRUGS (3)
  1. OXYCONTIN [Suspect]
     Indication: PAIN
     Dosage: 2 TABLET, BID
     Route: 048
     Dates: start: 20000503, end: 20010514
  2. HYDROCODONE BITARTRATE [Concomitant]
  3. PREVACID [Concomitant]

REACTIONS (2)
  - DEATH [None]
  - PARALYSIS [None]
